FAERS Safety Report 6646212-8 (Version None)
Quarter: 2010Q1

REPORT INFORMATION
  Report Type: 
  Country: None (occurrence: None)
  Receive Date: 20100323
  Receipt Date: 20100316
  Transmission Date: 20100710
  Serious: Yes (Hospitalization)
  Sender: FDA-Public Use
  Company Number: JP-ROCHE-674394

PATIENT
  Sex: Male

DRUGS (3)
  1. TAMIFLU [Suspect]
     Indication: INFLUENZA
     Route: 048
     Dates: start: 20091206, end: 20091206
  2. CALONAL [Suspect]
     Indication: PYREXIA
     Dosage: FORM: MINUTE GRAIN
     Route: 048
     Dates: start: 20091206, end: 20091206
  3. PREDONINE [Concomitant]
     Route: 065

REACTIONS (1)
  - ANAPHYLACTOID REACTION [None]
